FAERS Safety Report 6365003-9 (Version None)
Quarter: 2009Q3

REPORT INFORMATION
  Report Type: 
  Country: None (occurrence: None)
  Receive Date: 20090919
  Receipt Date: 20090805
  Transmission Date: 20100115
  Serious: No
  Sender: FDA-Public Use
  Company Number: US-ABBOTT-09P-163-0589627-00

PATIENT
  Sex: Female

DRUGS (2)
  1. HUMIRA [Suspect]
     Indication: CROHN'S DISEASE
     Dates: start: 20090727
  2. HUMIRA [Suspect]

REACTIONS (4)
  - FALL [None]
  - IMPAIRED HEALING [None]
  - JOINT SPRAIN [None]
  - JOINT SWELLING [None]
